FAERS Safety Report 15308498 (Version 2)
Quarter: 2018Q3

REPORT INFORMATION
  Report Type: Spontaneous
  Country: US (occurrence: US)
  Receive Date: 20180822
  Receipt Date: 20180907
  Transmission Date: 20181010
  Serious: Yes (Other)
  Sender: FDA-Public Use
  Company Number: US-GLAXOSMITHKLINE-US2018147063

PATIENT
  Age: 80 Year
  Sex: Female

DRUGS (1)
  1. THERAFLU FLU AND SORE THROAT [Suspect]
     Active Substance: ACETAMINOPHEN\PHENIRAMINE MALEATE\PHENYLEPHRINE HYDROCHLORIDE
     Indication: INFLUENZA
     Dosage: UNK
     Dates: start: 20180809, end: 20180809

REACTIONS (5)
  - Blister [Unknown]
  - Erythema [Unknown]
  - Local reaction [Unknown]
  - Cellulitis [Unknown]
  - Rash [Unknown]

NARRATIVE: CASE EVENT DATE: 20180809
